FAERS Safety Report 17072673 (Version 1)
Quarter: 2019Q4

REPORT INFORMATION
  Report Type: Spontaneous
  Country: US (occurrence: US)
  Receive Date: 20191125
  Receipt Date: 20191125
  Transmission Date: 20200122
  Serious: No
  Sender: FDA-Public Use
  Company Number: US-MYLANLABS-2019M1109968

PATIENT
  Age: 71 Year
  Sex: Female
  Weight: 60 kg

DRUGS (1)
  1. ESTRADIOL TRANSDERMAL SYSTEM [Suspect]
     Active Substance: ESTRADIOL
     Indication: PRODUCT USED FOR UNKNOWN INDICATION
     Dosage: UNK UNK, BID
     Route: 062

REACTIONS (5)
  - Feeling hot [Not Recovered/Not Resolved]
  - Drug ineffective [Not Recovered/Not Resolved]
  - Hyperhidrosis [Not Recovered/Not Resolved]
  - Off label use [Recovering/Resolving]
  - Product packaging difficult to open [Unknown]

NARRATIVE: CASE EVENT DATE: 20191104
